FAERS Safety Report 8166730-3 (Version None)
Quarter: 2012Q1

REPORT INFORMATION
  Report Type: 
  Country: None (occurrence: None)
  Receive Date: 20120221
  Receipt Date: 20120210
  Transmission Date: 20120608
  Serious: Yes (Hospitalization)
  Sender: FDA-Public Use
  Company Number: FRA-CLT-2012003

PATIENT
  Age: 6 Year
  Sex: Female

DRUGS (7)
  1. CYSTADANE [Suspect]
     Indication: VITAMIN B12 DEFICIENCY
     Dosage: 350 MG EVERY DAY
     Route: 048
     Dates: start: 20100123
  2. FOLIC ACID [Concomitant]
  3. BETAINE ANHYDROUS [Suspect]
     Dosage: 1 G EVERY DAY
     Route: 048
     Dates: start: 20100823
  4. ORAL POWDER [Suspect]
     Dosage: 1,500 G EVERY DAY
     Route: 047
     Dates: start: 20110217
  5. VITAMIN B6 [Concomitant]
  6. L-CARNITINE [Concomitant]
  7. VITAMIN B-12 [Concomitant]

REACTIONS (17)
  - DECREASED APPETITE [None]
  - BLOOD LACTATE DEHYDROGENASE INCREASED [None]
  - NEUTROPHIL PERCENTAGE INCREASED [None]
  - BLOOD ALKALINE PHOSPHATASE INCREASED [None]
  - BLOOD UREA INCREASED [None]
  - VOMITING [None]
  - PYREXIA [None]
  - BODY TEMPERATURE INCREASED [None]
  - HEART RATE INCREASED [None]
  - DIARRHOEA [None]
  - GASTROENTERITIS [None]
  - VARICELLA [None]
  - ABDOMINAL PAIN [None]
  - NAUSEA [None]
  - NASOPHARYNGITIS [None]
  - C-REACTIVE PROTEIN INCREASED [None]
  - ASTHENIA [None]
